FAERS Safety Report 12659679 (Version 1)
Quarter: 2016Q3

REPORT INFORMATION
  Report Type: Spontaneous
  Country: US (occurrence: US)
  Receive Date: 20160817
  Receipt Date: 20160817
  Transmission Date: 20161109
  Serious: Yes (Hospitalization, Other)
  Sender: FDA-Public Use
  Company Number: US-SHIRE-US201610270

PATIENT
  Sex: Female
  Weight: 46.71 kg

DRUGS (3)
  1. PENTASA [Suspect]
     Active Substance: MESALAMINE
     Indication: COLITIS ULCERATIVE
     Dosage: 1000 MG (FOUR 250 MG), 3X/DAY:TID
     Route: 048
     Dates: start: 2003
  2. SYNTHROID [Concomitant]
     Active Substance: LEVOTHYROXINE SODIUM
     Indication: HYPOTHYROIDISM
     Dosage: 0.75 MG, 1X/DAY:QD
     Route: 065
  3. PREDNISONE. [Suspect]
     Active Substance: PREDNISONE
     Indication: COLITIS ULCERATIVE
     Dosage: 10 MG (TWO 5 MG), 1X/DAY:QD
     Route: 048
     Dates: start: 2003

REACTIONS (13)
  - Peripheral venous disease [Recovered/Resolved]
  - Peripheral swelling [Recovered/Resolved]
  - Arthropathy [Not Recovered/Not Resolved]
  - Ocular hyperaemia [Recovered/Resolved]
  - Constipation [Recovered/Resolved]
  - Headache [Recovered/Resolved]
  - Blood potassium decreased [Recovered/Resolved]
  - Arthritis [Not Recovered/Not Resolved]
  - Pulmonary embolism [Recovered/Resolved]
  - Gastroenteritis viral [Recovered/Resolved]
  - Condition aggravated [Not Recovered/Not Resolved]
  - Blood test abnormal [Recovered/Resolved]
  - Joint swelling [Recovered/Resolved]

NARRATIVE: CASE EVENT DATE: 2012
